FAERS Safety Report 8947120 (Version 1)
Quarter: 2012Q4

REPORT INFORMATION
  Report Type: 
  Country: US (occurrence: US)
  Receive Date: 20121205
  Receipt Date: 20121205
  Transmission Date: 20130627
  Serious: No
  Sender: FDA-Public Use
  Company Number: US-PFIZER INC-2012302449

PATIENT
  Age: 67 Year
  Sex: Female

DRUGS (8)
  1. MORPHINE SULFATE [Suspect]
     Dosage: UNK
  2. PROMETHAZINE HCL [Suspect]
     Dosage: UNK
  3. INAPSINE [Suspect]
     Dosage: UNK
  4. ELAVIL [Suspect]
     Dosage: UNK
  5. ANAPROX [Suspect]
     Dosage: UNK
  6. COMPAZINE [Suspect]
     Dosage: UNK
  7. DEMEROL [Suspect]
     Dosage: UNK
  8. LORTAB [Suspect]
     Dosage: UNK

REACTIONS (1)
  - Drug hypersensitivity [Unknown]
